FAERS Safety Report 24000835 (Version 1)
Quarter: 2024Q2

REPORT INFORMATION
  Report Type: Spontaneous
  Country: US (occurrence: US)
  Receive Date: 20240621
  Receipt Date: 20240621
  Transmission Date: 20240716
  Serious: No
  Sender: FDA-Public Use
  Company Number: US-PERRIGO-24US003728

PATIENT
  Age: 74 Year
  Sex: Female
  Weight: 46.259 kg

DRUGS (3)
  1. NASONEX [Suspect]
     Active Substance: MOMETASONE FUROATE
     Indication: Rhinorrhoea
     Dosage: 100 MCG EACH NOSTRIL, QD
     Route: 045
     Dates: start: 20240411, end: 20240415
  2. NASONEX [Suspect]
     Active Substance: MOMETASONE FUROATE
     Indication: Perennial allergy
  3. LEVOTHYROXINE [Concomitant]
     Active Substance: LEVOTHYROXINE\LEVOTHYROXINE SODIUM
     Indication: Hypothyroidism
     Dosage: UNK
     Route: 065

REACTIONS (2)
  - Condition aggravated [Unknown]
  - Drug ineffective [Unknown]

NARRATIVE: CASE EVENT DATE: 20240411
